FAERS Safety Report 11112222 (Version 1)
Quarter: 2015Q2

REPORT INFORMATION
  Report Type: Spontaneous
  Country: US (occurrence: None)
  Receive Date: 20150513
  Receipt Date: 20150513
  Transmission Date: 20150821
  Serious: Yes (Hospitalization, Other)
  Sender: FDA-Public Use
  Company Number: None

PATIENT
  Age: 37 Year
  Sex: Female
  Weight: 77.11 kg

DRUGS (2)
  1. CINRYZE [Suspect]
     Active Substance: HUMAN C1-ESTERASE INHIBITOR
     Indication: HEREDITARY ANGIOEDEMA
     Dosage: EVERY 3 DAYS INFUSION
     Route: 042
  2. CINRYZE [Suspect]
     Active Substance: HUMAN C1-ESTERASE INHIBITOR
     Dosage: EVERY 3 DAYS INFUSION
     Route: 042

REACTIONS (3)
  - Subclavian vein thrombosis [None]
  - Jugular vein thrombosis [None]
  - Axillary vein thrombosis [None]

NARRATIVE: CASE EVENT DATE: 20150404
